FAERS Safety Report 11163147 (Version 3)
Quarter: 2016Q4

REPORT INFORMATION
  Report Type: Spontaneous
  Country: US (occurrence: US)
  Receive Date: 20150604
  Receipt Date: 20161209
  Transmission Date: 20170206
  Serious: Yes (Hospitalization, Other)
  Sender: FDA-Public Use
  Company Number: US-MERCK-1506USA002077

PATIENT
  Sex: Male

DRUGS (7)
  1. SINGULAIR [Concomitant]
     Active Substance: MONTELUKAST SODIUM
     Indication: SINUS DISORDER
     Dosage: UNK
     Route: 048
     Dates: start: 200504, end: 201202
  2. PREVACID [Concomitant]
     Active Substance: LANSOPRAZOLE
     Indication: DYSPEPSIA
     Dosage: UNK
     Route: 065
     Dates: start: 200504, end: 200911
  3. PROPECIA [Suspect]
     Active Substance: FINASTERIDE
     Indication: ALOPECIA
     Dosage: 1 MG, UNK
     Route: 048
     Dates: start: 20070407, end: 2014
  4. FINASTERIDE. [Suspect]
     Active Substance: FINASTERIDE
     Indication: ALOPECIA
     Dosage: 5 MG, UNK
     Route: 065
     Dates: start: 20140327, end: 20140917
  5. CAPTOPRIL. [Concomitant]
     Active Substance: CAPTOPRIL
     Indication: HYPERTENSION
     Dosage: UNK
     Route: 065
     Dates: start: 2003, end: 2013
  6. FINASTERIDE. [Suspect]
     Active Substance: FINASTERIDE
     Indication: ALOPECIA
     Dosage: 1 MG, UNK
     Route: 048
     Dates: start: 20130201
  7. RHINOCORT [Concomitant]
     Active Substance: BUDESONIDE
     Indication: SINUS DISORDER
     Dosage: UNK
     Route: 065
     Dates: start: 200508, end: 201008

REACTIONS (20)
  - Prostate cancer [Recovering/Resolving]
  - Post procedural haemorrhage [Unknown]
  - Atelectasis [Unknown]
  - Fall [Unknown]
  - Musculoskeletal chest pain [Unknown]
  - Large intestine polyp [Unknown]
  - Erectile dysfunction [Recovered/Resolved]
  - Large intestine polyp [Unknown]
  - Basal cell carcinoma [Unknown]
  - Osteoarthritis [Unknown]
  - Weight increased [Unknown]
  - Fatigue [Unknown]
  - Ejaculation failure [Unknown]
  - Blood cholesterol increased [Unknown]
  - Infrequent bowel movements [Unknown]
  - Blood testosterone decreased [Unknown]
  - Nephrolithiasis [Unknown]
  - Bursitis [Unknown]
  - Diarrhoea [Unknown]
  - Nephrocalcinosis [Unknown]

NARRATIVE: CASE EVENT DATE: 200705
